FAERS Safety Report 18092789 (Version 1)
Quarter: 2020Q3

REPORT INFORMATION
  Report Type: Spontaneous
  Country: US (occurrence: US)
  Receive Date: 20200730
  Receipt Date: 20200730
  Transmission Date: 20201103
  Serious: Yes (Life-Threatening)
  Sender: FDA-Public Use
  Company Number: US-PFIZER INC-2020287272

PATIENT
  Sex: Female

DRUGS (1)
  1. KETAMINE HCL [Suspect]
     Active Substance: KETAMINE HYDROCHLORIDE
     Dosage: 500 MG
     Route: 042

REACTIONS (8)
  - Wrong technique in product usage process [Unknown]
  - Incorrect dose administered [Unknown]
  - Apnoea [Recovered/Resolved]
  - Oxygen saturation decreased [Recovered/Resolved]
  - Dissociation [Unknown]
  - Respiratory arrest [Recovered/Resolved]
  - Hypotension [Recovering/Resolving]
  - Vomiting [Unknown]
